APPROVED DRUG PRODUCT: MARAVIROC
Active Ingredient: MARAVIROC
Strength: 300MG
Dosage Form/Route: TABLET;ORAL
Application: A217114 | Product #002 | TE Code: AB
Applicant: I 3 PHARMACEUTICALS LLC
Approved: Aug 17, 2023 | RLD: No | RS: No | Type: RX